FAERS Safety Report 7596624-3 (Version None)
Quarter: 2011Q3

REPORT INFORMATION
  Report Type: 
  Country: None (occurrence: None)
  Receive Date: 20110708
  Receipt Date: 20110627
  Transmission Date: 20111222
  Serious: No
  Sender: FDA-Public Use
  Company Number: US-JNJFOC-20110610056

PATIENT
  Sex: Female
  Weight: 79.3 kg

DRUGS (17)
  1. FOLIC ACID [Concomitant]
     Route: 048
     Dates: start: 20060201
  2. OMEPRAZOLE [Concomitant]
     Route: 048
     Dates: start: 20071216
  3. GOLIMUMAB [Suspect]
     Indication: RHEUMATOID ARTHRITIS
     Route: 058
     Dates: start: 20061012
  4. TYLENOL-500 [Concomitant]
     Dates: start: 20110202
  5. MULTI-VITAMINS [Concomitant]
     Dates: start: 20040601
  6. CLONIDINE [Concomitant]
     Route: 048
     Dates: start: 20100215
  7. ASCORBIC ACID [Concomitant]
     Route: 048
     Dates: start: 20101202
  8. LORATADINE [Concomitant]
     Route: 048
     Dates: start: 20040601
  9. LEVOTHYROXINE SODIUM [Concomitant]
     Route: 048
     Dates: start: 20100201
  10. METHOTREXATE [Suspect]
     Indication: RHEUMATOID ARTHRITIS
     Route: 048
     Dates: start: 20060927, end: 20080501
  11. METHOTREXATE [Concomitant]
     Route: 048
     Dates: start: 20080611
  12. ULTRAM [Concomitant]
     Route: 048
     Dates: start: 20110325
  13. CITRACAL [Concomitant]
     Dates: start: 20100201
  14. DICLOFENAC SODIUM [Concomitant]
     Route: 048
     Dates: start: 20090410
  15. ZOCOR [Concomitant]
     Route: 048
     Dates: start: 20070518
  16. GOLIMUMAB [Suspect]
     Route: 058
     Dates: start: 20070201
  17. ASPIRIN [Concomitant]
     Route: 048
     Dates: start: 20101027

REACTIONS (1)
  - BASAL CELL CARCINOMA [None]
